FAERS Safety Report 9485917 (Version 1)
Quarter: 2013Q3

REPORT INFORMATION
  Report Type: Spontaneous
  Country: US (occurrence: None)
  Receive Date: 20130827
  Receipt Date: 20130827
  Transmission Date: 20140515
  Serious: No
  Sender: FDA-Public Use
  Company Number: None

PATIENT
  Age: 79 Year
  Sex: Male

DRUGS (2)
  1. VELCADE MILLENNIUM [Suspect]
     Indication: PLASMA CELL MYELOMA
     Dosage: 3 CYCLES IN 2010
     Route: 058
     Dates: start: 2010
  2. REVLIMID [Suspect]
     Indication: PLASMA CELL MYELOMA

REACTIONS (2)
  - Neuropathy peripheral [None]
  - Insomnia [None]
